FAERS Safety Report 5194836-X (Version None)
Quarter: 2006Q4

REPORT INFORMATION
  Report Type: 
  Country: None (occurrence: None)
  Receive Date: 20061229
  Receipt Date: 20061221
  Transmission Date: 20070319
  Serious: No
  Sender: FDA-Public Use
  Company Number: 2006PK02686

PATIENT
  Age: 35 Year
  Sex: Male

DRUGS (3)
  1. SEROQUEL [Suspect]
     Route: 048
     Dates: end: 20061214
  2. SEROQUEL [Suspect]
     Route: 048
     Dates: end: 20061214
  3. SEROQUEL [Suspect]
     Route: 048
     Dates: end: 20061214

REACTIONS (2)
  - LEUKOPENIA [None]
  - TINNITUS [None]
